FAERS Safety Report 18402391 (Version 4)
Quarter: 2022Q1

REPORT INFORMATION
  Report Type: Spontaneous
  Country: US (occurrence: US)
  Receive Date: 20201019
  Receipt Date: 20220204
  Transmission Date: 20220424
  Serious: No
  Sender: FDA-Public Use
  Company Number: US-PFIZER INC-2020393076

PATIENT
  Age: 2 Year
  Sex: Male
  Weight: 9.98 kg

DRUGS (1)
  1. SOMATROPIN [Suspect]
     Active Substance: SOMATROPIN
     Dosage: 0.4 MG, DAILY
     Dates: start: 20201007

REACTIONS (5)
  - Device use issue [Unknown]
  - Product complaint [Unknown]
  - Injection site pain [Unknown]
  - Injection site extravasation [Unknown]
  - Wrong technique in device usage process [Unknown]

NARRATIVE: CASE EVENT DATE: 20201001
